FAERS Safety Report 7765613-8 (Version None)
Quarter: 2011Q3

REPORT INFORMATION
  Report Type: 
  Country: None (occurrence: None)
  Receive Date: 20110921
  Receipt Date: 20110915
  Transmission Date: 20111222
  Serious: Yes (Hospitalization, Other)
  Sender: FDA-Public Use
  Company Number: PHHO2010CA11851

PATIENT
  Sex: Male
  Weight: 94.785 kg

DRUGS (4)
  1. FTY [Suspect]
     Dosage: 0.5 MG
     Route: 048
     Dates: start: 20100127, end: 20100728
  2. LYRICA [Concomitant]
     Indication: PAIN
     Dosage: 50MG, TID
     Route: 048
     Dates: start: 20100504
  3. BUPROPION HCL [Concomitant]
     Indication: DEPRESSION
     Dosage: 150MG, QD
     Route: 048
     Dates: start: 20100419
  4. FTY [Suspect]
     Indication: MULTIPLE SCLEROSIS
     Dosage: 1.25MG
     Route: 048
     Dates: start: 20080422, end: 20100126

REACTIONS (3)
  - TESTICULAR GERM CELL CANCER [None]
  - TUMOUR HAEMORRHAGE [None]
  - TUMOUR NECROSIS [None]
